FAERS Safety Report 11379501 (Version 5)
Quarter: 2016Q1

REPORT INFORMATION
  Report Type: Report from Study
  Country: US (occurrence: US)
  Receive Date: 20150814
  Receipt Date: 20160212
  Transmission Date: 20160525
  Serious: No
  Sender: FDA-Public Use
  Company Number: US-AMGEN-USASP2015076110

PATIENT
  Age: 64 Year
  Sex: Male

DRUGS (4)
  1. DICLOFENAC [Concomitant]
     Active Substance: DICLOFENAC
     Dosage: UNK, QWK
     Route: 048
  2. PREDNISONE. [Concomitant]
     Active Substance: PREDNISONE
     Dosage: 5 MG, BID
  3. METHOTREXATE (METHOTREXATE SODIUM) [Concomitant]
     Active Substance: METHOTREXATE SODIUM
     Dosage: UNK UNK, QWK
     Route: 048
  4. ENBREL [Suspect]
     Active Substance: ETANERCEPT
     Indication: RHEUMATOID ARTHRITIS
     Dosage: 50 MG, ONCE WEEKLY
     Route: 065
     Dates: start: 20150724

REACTIONS (16)
  - Pain in extremity [Unknown]
  - Musculoskeletal pain [Unknown]
  - Carpal tunnel syndrome [Not Recovered/Not Resolved]
  - Joint range of motion decreased [Unknown]
  - Asthenia [Unknown]
  - Drug effect incomplete [Unknown]
  - Hyperaesthesia [Not Recovered/Not Resolved]
  - Swelling [Recovering/Resolving]
  - Arthralgia [Unknown]
  - Arthritis [Not Recovered/Not Resolved]
  - Peripheral swelling [Recovering/Resolving]
  - Headache [Recovered/Resolved]
  - Musculoskeletal stiffness [Unknown]
  - Pain [Unknown]
  - Therapeutic response unexpected [Unknown]
  - Fatigue [Recovering/Resolving]

NARRATIVE: CASE EVENT DATE: 2015
